FAERS Safety Report 7542434-2 (Version None)
Quarter: 2011Q2

REPORT INFORMATION
  Report Type: 
  Country: None (occurrence: None)
  Receive Date: 20110613
  Receipt Date: 20110324
  Transmission Date: 20111010
  Serious: No
  Sender: FDA-Public Use
  Company Number: A0919800A

PATIENT
  Age: 54 Year
  Sex: Female

DRUGS (1)
  1. NICORETTE [Suspect]
     Dates: start: 20110308

REACTIONS (3)
  - MALAISE [None]
  - VOMITING [None]
  - MIGRAINE [None]
